FAERS Safety Report 10497549 (Version 2)
Quarter: 2014Q4

REPORT INFORMATION
  Report Type: Spontaneous
  Country: US (occurrence: None)
  Receive Date: 20141002
  Receipt Date: 20141006
  Transmission Date: 20150528
  Serious: Yes (Life-Threatening, Hospitalization, Other)
  Sender: FDA-Public Use
  Company Number: ADR-2014-01777

PATIENT
  Sex: Female

DRUGS (1)
  1. COMPOUNDED BACLOFEN INTRATHECAL [Suspect]
     Active Substance: BACLOFEN
     Indication: CEREBRAL PALSY
     Dosage: 74.95 MCG/DAY

REACTIONS (7)
  - Fall [None]
  - Seizure [None]
  - Pyrexia [None]
  - Loss of consciousness [None]
  - Mental status changes [None]
  - Vaccination complication [None]
  - Brain oedema [None]
